FAERS Safety Report 4814870-6 (Version None)
Quarter: 2005Q4

REPORT INFORMATION
  Report Type: 
  Country: None (occurrence: None)
  Receive Date: 20051028
  Receipt Date: 20051018
  Transmission Date: 20060501
  Serious: Yes (Other)
  Sender: FDA-Public Use
  Company Number: US-ROCHE-421847

PATIENT
  Age: 56 Year
  Sex: Female

DRUGS (2)
  1. PEGASYS [Suspect]
     Route: 058
     Dates: start: 20050415
  2. COPEGUS [Suspect]
     Route: 048
     Dates: start: 20050415

REACTIONS (4)
  - DIALYSIS [None]
  - INFLUENZA LIKE ILLNESS [None]
  - PANIC ATTACK [None]
  - PYREXIA [None]
